FAERS Safety Report 23250476 (Version 5)
Quarter: 2025Q3

REPORT INFORMATION
  Report Type: Report from Study
  Country: CA (occurrence: CA)
  Receive Date: 20231201
  Receipt Date: 20250918
  Transmission Date: 20251020
  Serious: Yes (Other)
  Sender: TAKEDA
  Company Number: CA-TAKEDA-2023TUS115006

PATIENT
  Age: 53 Year
  Sex: Female

DRUGS (10)
  1. VEDOLIZUMAB [Suspect]
     Active Substance: VEDOLIZUMAB
     Indication: Colitis ulcerative
  2. VEDOLIZUMAB [Suspect]
     Active Substance: VEDOLIZUMAB
  3. VEDOLIZUMAB [Suspect]
     Active Substance: VEDOLIZUMAB
  4. VEDOLIZUMAB [Suspect]
     Active Substance: VEDOLIZUMAB
     Dosage: 300 MILLIGRAM, Q4WEEKS
     Dates: start: 20250912
  5. Reactine [Concomitant]
  6. XOLAIR [Concomitant]
     Active Substance: OMALIZUMAB
  7. ASPIRIN [Concomitant]
     Active Substance: ASPIRIN
  8. EZETIMIBE [Concomitant]
     Active Substance: EZETIMIBE
  9. VITAMIN D [Concomitant]
     Active Substance: VITAMIN D NOS
  10. ROSUVASTATIN [Concomitant]
     Active Substance: ROSUVASTATIN

REACTIONS (9)
  - Haematochezia [Unknown]
  - Migraine [Unknown]
  - Blood pressure diastolic increased [Unknown]
  - Off label use [Unknown]
  - Therapeutic reaction time decreased [Not Recovered/Not Resolved]
  - Heart rate increased [Unknown]
  - Abdominal pain [Unknown]
  - Blood pressure increased [Unknown]
  - Constipation [Unknown]

NARRATIVE: CASE EVENT DATE: 20250912
